FAERS Safety Report 8301612-5 (Version None)
Quarter: 2012Q2

REPORT INFORMATION
  Report Type: 
  Country: None (occurrence: None)
  Receive Date: 20120420
  Receipt Date: 20120416
  Transmission Date: 20120825
  Serious: Yes (Death, Hospitalization, Other)
  Sender: FDA-Public Use
  Company Number: CH-ELI_LILLY_AND_COMPANY-CH201203002938

PATIENT
  Age: 64 Year
  Sex: Male

DRUGS (6)
  1. GEMCITABINE HYDROCHLORIDE [Suspect]
     Indication: LUNG ADENOCARCINOMA
     Dosage: UNK
  2. CARBOPLATIN [Concomitant]
  3. PEMETREXED [Suspect]
     Indication: LUNG ADENOCARCINOMA
     Dosage: 500 MG/M2, UNK
  4. CORTICOSTEROIDS [Concomitant]
  5. VITAMIN B-12 [Concomitant]
  6. FOLIC ACID [Concomitant]
     Dosage: UNK, QD

REACTIONS (5)
  - BACTERIAL INFECTION [None]
  - RADIATION PNEUMONITIS [None]
  - RESPIRATORY FAILURE [None]
  - PULMONARY TOXICITY [None]
  - NEOPLASM PROGRESSION [None]
